FAERS Safety Report 19265107 (Version 1)
Quarter: 2021Q2

REPORT INFORMATION
  Report Type: Spontaneous
  Country: GB (occurrence: GB)
  Receive Date: 20210517
  Receipt Date: 20210517
  Transmission Date: 20210717
  Serious: Yes (Other)
  Sender: FDA-Public Use
  Company Number: GB-MYLANLABS-2021M1028030

PATIENT
  Age: 88 Year

DRUGS (8)
  1. TEICOPLANIN [Suspect]
     Active Substance: TEICOPLANIN
     Indication: OSTEONECROSIS
     Dosage: 6 WEEK COURSE
     Dates: start: 20210402
  2. RIFAMPICIN [Suspect]
     Active Substance: RIFAMPIN
     Indication: IMPACTED FRACTURE
  3. TEICOPLANIN [Suspect]
     Active Substance: TEICOPLANIN
     Indication: HIP FRACTURE
  4. RIFAMPICIN [Suspect]
     Active Substance: RIFAMPIN
     Indication: HIP FRACTURE
  5. RIFAMPICIN [Suspect]
     Active Substance: RIFAMPIN
     Indication: OSTEONECROSIS
     Dosage: 6 WEEK COURSE
  6. TEICOPLANIN [Suspect]
     Active Substance: TEICOPLANIN
     Indication: IMPACTED FRACTURE
  7. TEICOPLANIN [Suspect]
     Active Substance: TEICOPLANIN
     Indication: INFECTION
  8. RIFAMPICIN [Suspect]
     Active Substance: RIFAMPIN
     Indication: INFECTION

REACTIONS (2)
  - Ototoxicity [Unknown]
  - Drug level increased [Unknown]

NARRATIVE: CASE EVENT DATE: 2021
